FAERS Safety Report 5153106-6 (Version None)
Quarter: 2006Q4

REPORT INFORMATION
  Report Type: 
  Country: None (occurrence: None)
  Receive Date: 20061117
  Receipt Date: 20061113
  Transmission Date: 20070319
  Serious: Yes (Life-Threatening, Hospitalization, Other)
  Sender: FDA-Public Use
  Company Number: SV-GLAXOSMITHKLINE-A0627561A

PATIENT
  Age: 1 Year
  Sex: Male
  Weight: 20 kg

DRUGS (2)
  1. SERETIDE [Suspect]
     Indication: ASTHMA
     Dates: start: 20061012
  2. PULMICORT [Suspect]
     Indication: ASTHMA

REACTIONS (4)
  - DRUG ADMINISTRATION ERROR [None]
  - HEART RATE INCREASED [None]
  - OVERDOSE [None]
  - TACHYCARDIA [None]
